FAERS Safety Report 7097216-5 (Version None)
Quarter: 2010Q4

REPORT INFORMATION
  Report Type: 
  Country: None (occurrence: None)
  Receive Date: 20101111
  Receipt Date: 20100330
  Transmission Date: 20110411
  Serious: No
  Sender: FDA-Public Use
  Company Number: US-KINGPHARMUSA00001-K201000380

PATIENT
  Age: 38 Year
  Sex: Male
  Weight: 81.633 kg

DRUGS (1)
  1. AVINZA [Suspect]
     Indication: NEURALGIA
     Dosage: 120 MG, QID
     Route: 048

REACTIONS (4)
  - DRUG INEFFECTIVE [None]
  - GASTRIC DISORDER [None]
  - GASTROOESOPHAGEAL REFLUX DISEASE [None]
  - NAUSEA [None]
